FAERS Safety Report 5989040-9 (Version None)
Quarter: 2008Q4

REPORT INFORMATION
  Report Type: 
  Country: None (occurrence: None)
  Receive Date: 20081204
  Receipt Date: 20081128
  Transmission Date: 20090506
  Serious: Yes (Hospitalization)
  Sender: FDA-Public Use
  Company Number: TCI2008A05852

PATIENT
  Age: 76 Year
  Sex: Female

DRUGS (2)
  1. LANSOPRAZOLE [Suspect]
     Indication: OSTEOARTHRITIS
     Dosage: 30 MG (30 MG, 1D); PER ORAL
     Route: 048
  2. LOXOPROFEN SODIUM (PREPARATION FOR ORAL USE(NOS)) [Suspect]
     Indication: OSTEOARTHRITIS
     Dosage: 180 MG (180 MG, 1 D) PER ORAL
     Route: 048

REACTIONS (4)
  - COLITIS COLLAGENOUS [None]
  - HYPOVOLAEMIC SHOCK [None]
  - NO THERAPEUTIC RESPONSE [None]
  - PROTEIN-LOSING GASTROENTEROPATHY [None]
